FAERS Safety Report 14823496 (Version 5)
Quarter: 2018Q2

REPORT INFORMATION
  Report Type: Report from Study
  Country: JP (occurrence: JP)
  Receive Date: 20180428
  Receipt Date: 20180627
  Transmission Date: 20180711
  Serious: Yes (Hospitalization)
  Sender: FDA-Public Use
  Company Number: JP-TAKEDA-2018TJP011345

PATIENT
  Age: 75 Year
  Sex: Female
  Weight: 57.1 kg

DRUGS (14)
  1. PRAVASTATIN NA [Suspect]
     Active Substance: PRAVASTATIN SODIUM
     Indication: HYPERCHOLESTEROLAEMIA
     Dosage: 10 MG, QD
     Route: 048
  2. ZOMETA [Suspect]
     Active Substance: ZOLEDRONIC ACID
     Indication: PLASMA CELL MYELOMA
     Dosage: 1 DF, MONTHLY
     Route: 041
  3. IXAZOMIB [Suspect]
     Active Substance: IXAZOMIB
     Indication: PLASMA CELL MYELOMA
     Dosage: UNK, 1/WEEK
     Route: 048
     Dates: start: 20170703, end: 20180424
  4. SOFTEAR [Suspect]
     Active Substance: CYANOCOBALAMIN
     Indication: PROPHYLAXIS
     Dosage: UNK, BID
     Route: 047
  5. DERMOVATE [Suspect]
     Active Substance: CLOBETASOL
     Indication: PRURITUS
     Dosage: UNK
     Route: 061
  6. ATENOLOL. [Suspect]
     Active Substance: ATENOLOL
     Indication: HYPERTENSION
     Dosage: 25 MG, QD
     Route: 048
  7. FAMOTIDINE OD [Suspect]
     Active Substance: FAMOTIDINE
     Indication: PROPHYLAXIS AGAINST GASTROINTESTINAL ULCER
     Dosage: 10 MG, BID
     Route: 048
  8. MYSLEE [Suspect]
     Active Substance: ZOLPIDEM TARTRATE
     Indication: INSOMNIA
     Dosage: 10 MG, QD
     Route: 048
  9. MAGMITT [Suspect]
     Active Substance: MAGNESIUM OXIDE
     Indication: IRRITABLE BOWEL SYNDROME
     Dosage: 1500 MG, QD
     Route: 048
  10. GOSHAJINKIGAN [Suspect]
     Active Substance: HERBALS
     Indication: PLASMA CELL MYELOMA
     Dosage: 2.5 G, TID
     Route: 048
     Dates: start: 20170227
  11. AMLODIPINE [Suspect]
     Active Substance: AMLODIPINE BESYLATE
     Indication: HYPERTENSION
     Dosage: 5 MG, QD
     Route: 048
  12. ONGLYZA [Suspect]
     Active Substance: SAXAGLIPTIN HYDROCHLORIDE
     Indication: DIABETES MELLITUS
     Dosage: 5 MG, QD
     Route: 048
  13. METFORMIN HYDROCHLORIDE. [Suspect]
     Active Substance: METFORMIN HYDROCHLORIDE
     Indication: DIABETES MELLITUS
     Dosage: 500 MG, BID
     Route: 048
  14. ANTEBATE [Suspect]
     Active Substance: BETAMETHASONE DIPROPIONATE
     Indication: URTICARIA
     Dosage: UNK
     Route: 061

REACTIONS (2)
  - Protein urine [Recovering/Resolving]
  - Pancytopenia [Recovered/Resolved]

NARRATIVE: CASE EVENT DATE: 20180424
